FAERS Safety Report 19357617 (Version 1)
Quarter: 2021Q2

REPORT INFORMATION
  Report Type: Spontaneous
  Country: BG (occurrence: BG)
  Receive Date: 20210601
  Receipt Date: 20210601
  Transmission Date: 20210717
  Serious: Yes (Other)
  Sender: FDA-Public Use
  Company Number: NVSC2021BG115287

PATIENT
  Age: 52 Year
  Sex: Female

DRUGS (2)
  1. RIBOCICLIB. [Suspect]
     Active Substance: RIBOCICLIB
     Indication: BREAST CANCER METASTATIC
     Dosage: 600 MG, QD
     Route: 048
     Dates: start: 202001
  2. ANASTROZOLE. [Concomitant]
     Active Substance: ANASTROZOLE
     Indication: BREAST CANCER METASTATIC
     Dosage: 1 MG, QD
     Route: 048
     Dates: start: 202001

REACTIONS (2)
  - Granulocytopenia [Not Recovered/Not Resolved]
  - Granulocytopenia [Recovered/Resolved]

NARRATIVE: CASE EVENT DATE: 202006
